FAERS Safety Report 10768721 (Version 1)
Quarter: 2015Q1

REPORT INFORMATION
  Report Type: Spontaneous
  Country: DE (occurrence: None)
  Receive Date: 20150204
  Receipt Date: 20150204
  Transmission Date: 20150721
  Serious: Yes (Hospitalization, Other)
  Sender: FDA-Public Use
  Company Number: 2015HINLIT0057

PATIENT
  Age: 16 Year
  Sex: Male

DRUGS (2)
  1. PHENOBARBITAL. [Concomitant]
     Active Substance: PHENOBARBITAL
  2. LEVETIRACTAM [Suspect]
     Active Substance: LEVETIRACETAM

REACTIONS (7)
  - Pneumonia [None]
  - Mucosal inflammation [None]
  - Myelodysplastic syndrome [None]
  - Klebsiella sepsis [None]
  - Respiratory failure [None]
  - Transplant failure [None]
  - Seizure [None]
